FAERS Safety Report 6915756-3 (Version None)
Quarter: 2010Q3

REPORT INFORMATION
  Report Type: 
  Country: None (occurrence: None)
  Receive Date: 20100810
  Receipt Date: 20100609
  Transmission Date: 20110219
  Serious: No
  Sender: FDA-Public Use
  Company Number: A0864042A

PATIENT
  Age: 56 Year
  Sex: Female

DRUGS (6)
  1. PAXIL CR [Suspect]
     Indication: DEPRESSION
     Dosage: 12.5MG PER DAY
     Route: 048
     Dates: start: 20100607
  2. PROTONIX [Concomitant]
  3. LEVOTHYROXINE SODIUM [Concomitant]
  4. WARFARIN SODIUM [Concomitant]
  5. DILTIAZEM [Concomitant]
  6. TOPROL-XL [Concomitant]

REACTIONS (2)
  - DIZZINESS [None]
  - MALAISE [None]
